FAERS Safety Report 9670629 (Version 1)
Quarter: 2013Q4

REPORT INFORMATION
  Report Type: Spontaneous
  Country: FR (occurrence: FR)
  Receive Date: 20131106
  Receipt Date: 20131106
  Transmission Date: 20140711
  Serious: Yes (Hospitalization)
  Sender: FDA-Public Use
  Company Number: FR-ROCHE-1295651

PATIENT
  Sex: Female

DRUGS (7)
  1. AVASTIN [Suspect]
     Indication: COLON CANCER METASTATIC
     Dosage: 25 MG/ML
     Route: 042
     Dates: start: 20130916, end: 20130916
  2. FLUOROURACIL [Suspect]
     Indication: PRODUCT USED FOR UNKNOWN INDICATION
     Dosage: 50 MG/ML
     Route: 042
     Dates: start: 20130916, end: 20130918
  3. FLUOROURACIL [Suspect]
     Dosage: 9 CYCLES
     Route: 065
     Dates: start: 20120111, end: 20120730
  4. IRINOTECAN [Suspect]
     Indication: PRODUCT USED FOR UNKNOWN INDICATION
     Dosage: 20 MG/ML
     Route: 042
     Dates: start: 20130916, end: 20130916
  5. IRINOTECAN [Suspect]
     Dosage: 9 CYCLES
     Route: 065
     Dates: start: 20120111, end: 20120730
  6. CALCIUM LEVOFOLINATE [Concomitant]
     Route: 042
     Dates: start: 20130916, end: 20130916
  7. LEVOTHYROX [Concomitant]
     Route: 048
     Dates: start: 1992

REACTIONS (1)
  - Agranulocytosis [Recovered/Resolved]
